FAERS Safety Report 25657952 (Version 1)
Quarter: 2025Q3

REPORT INFORMATION
  Report Type: Spontaneous
  Country: US (occurrence: US)
  Receive Date: 20250808
  Receipt Date: 20250808
  Transmission Date: 20251020
  Serious: Yes (Hospitalization)
  Sender: AMGEN
  Company Number: US-AMGEN-USASL2025153936

PATIENT
  Sex: Female

DRUGS (5)
  1. REPATHA [Suspect]
     Active Substance: EVOLOCUMAB
     Indication: Arteriosclerosis
     Dosage: 140 MILLIGRAM, Q2WK
     Route: 058
     Dates: start: 202412
  2. REPATHA [Suspect]
     Active Substance: EVOLOCUMAB
     Indication: Heart disease congenital
  3. COLCHICINE [Concomitant]
     Active Substance: COLCHICINE
     Indication: Product used for unknown indication
     Route: 058
  4. DANDELION [Concomitant]
     Active Substance: TARAXACUM OFFICINALE POLLEN
     Indication: Product used for unknown indication
     Route: 058
  5. DIETARY SUPPLEMENT\HERBALS\MILK THISTLE [Concomitant]
     Active Substance: MILK THISTLE
     Indication: Product used for unknown indication
     Route: 058

REACTIONS (2)
  - Pericarditis [Unknown]
  - Alanine aminotransferase increased [Unknown]
